FAERS Safety Report 4823827-0 (Version None)
Quarter: 2005Q4

REPORT INFORMATION
  Report Type: 
  Country: None (occurrence: None)
  Receive Date: 20051107
  Receipt Date: 20051024
  Transmission Date: 20060501
  Serious: Yes (Hospitalization)
  Sender: FDA-Public Use
  Company Number: 200410605BFR

PATIENT
  Age: 60 Year
  Sex: Female
  Weight: 130 kg

DRUGS (7)
  1. ACARBOSE [Suspect]
     Dosage: 150 MG, TOTAL DAILY, ORAL
     Route: 048
     Dates: start: 20040901, end: 20041029
  2. DILTIAZEM HCL [Concomitant]
  3. EUPRESSYL [Concomitant]
  4. TRIATEC [Concomitant]
  5. ZOLOFT [Concomitant]
  6. LODALES [Concomitant]
  7. MEDIATOR [Concomitant]

REACTIONS (4)
  - CYTOLYTIC HEPATITIS [None]
  - ENDOSCOPY GASTROINTESTINAL ABNORMAL [None]
  - PANCREATITIS ACUTE [None]
  - PANCREATITIS NECROTISING [None]
